FAERS Safety Report 16038630 (Version 2)
Quarter: 2019Q2

REPORT INFORMATION
  Report Type: Spontaneous
  Country: US (occurrence: US)
  Receive Date: 20190305
  Receipt Date: 20190404
  Transmission Date: 20190711
  Serious: No
  Sender: FDA-Public Use
  Company Number: US-ASTRAZENECA-2019SE22488

PATIENT
  Sex: Male
  Weight: 113.4 kg

DRUGS (1)
  1. SYMBICORT [Suspect]
     Active Substance: BUDESONIDE\FORMOTEROL FUMARATE DIHYDRATE
     Indication: ASTHMA
     Dosage: 80/4.5 MCG TWO INHALATIONS TWO TIMES A DAY
     Route: 055

REACTIONS (6)
  - Oral fungal infection [Unknown]
  - Device malfunction [Unknown]
  - Wrong technique in device usage process [Not Recovered/Not Resolved]
  - Asthma [Not Recovered/Not Resolved]
  - Off label use [Not Recovered/Not Resolved]
  - Intentional device misuse [Not Recovered/Not Resolved]
